FAERS Safety Report 21090906 (Version 2)
Quarter: 2022Q3

REPORT INFORMATION
  Report Type: Spontaneous
  Country: NL (occurrence: NL)
  Receive Date: 20220716
  Receipt Date: 20220722
  Transmission Date: 20221027
  Serious: Yes (Other)
  Sender: FDA-Public Use
  Company Number: None

PATIENT
  Age: 51 Year
  Sex: Female
  Weight: 95 kg

DRUGS (1)
  1. PREDNISOLONE [Suspect]
     Active Substance: PREDNISOLONE
     Indication: Arthritis
     Dosage: INJECTION INTO JOINT, / BRAND NAME NOT SPECIFIED ,THERAPY END DATE : ASKU UNIT DOSE : 1 DF
     Route: 014
     Dates: start: 20220613

REACTIONS (4)
  - Postmenopausal haemorrhage [Recovering/Resolving]
  - Hot flush [Recovering/Resolving]
  - Feeling hot [Recovered/Resolved]
  - Erythema [Recovered/Resolved]

NARRATIVE: CASE EVENT DATE: 20220615
